FAERS Safety Report 10748539 (Version 1)
Quarter: 2015Q1

REPORT INFORMATION
  Report Type: Spontaneous
  Country: US (occurrence: None)
  Receive Date: 20150128
  Receipt Date: 20150128
  Transmission Date: 20150721
  Serious: Yes (Other)
  Sender: FDA-Public Use
  Company Number: None

PATIENT
  Age: 89 Year
  Sex: Male
  Weight: 68.95 kg

DRUGS (1)
  1. XIFAXAN [Suspect]
     Active Substance: RIFAXIMIN
     Indication: LIVER DISORDER
     Dosage: 1 PILL TWICE DAILY
     Route: 048
     Dates: start: 20141228, end: 20150127

REACTIONS (5)
  - Fatigue [None]
  - Fluid retention [None]
  - Weight increased [None]
  - Nausea [None]
  - Ascites [None]

NARRATIVE: CASE EVENT DATE: 20150116
